FAERS Safety Report 10599506 (Version 2)
Quarter: 2014Q4

REPORT INFORMATION
  Report Type: Spontaneous
  Country: US (occurrence: US)
  Receive Date: 20141121
  Receipt Date: 20141121
  Transmission Date: 20150529
  Serious: Yes (Hospitalization, Other)
  Sender: FDA-Public Use
  Company Number: US-GLAXOSMITHKLINE-A0882385A

PATIENT
  Sex: Female

DRUGS (1)
  1. AVANDIA [Suspect]
     Active Substance: ROSIGLITAZONE MALEATE
     Indication: TYPE 2 DIABETES MELLITUS
     Dosage: 2 MG, UNK
     Route: 048
     Dates: start: 20020130, end: 20060729

REACTIONS (5)
  - Ill-defined disorder [Unknown]
  - Depression [Unknown]
  - Coronary artery disease [Unknown]
  - Cardiac failure congestive [Not Recovered/Not Resolved]
  - Pleural effusion [Unknown]
